FAERS Safety Report 5999452-5 (Version None)
Quarter: 2008Q4

REPORT INFORMATION
  Report Type: 
  Country: None (occurrence: None)
  Receive Date: 20081211
  Receipt Date: 20081126
  Transmission Date: 20090506
  Serious: Yes (Hospitalization)
  Sender: FDA-Public Use
  Company Number: 2008003065

PATIENT
  Age: 68 Year
  Sex: Female

DRUGS (4)
  1. ERLOTINIB (ERLOTINIB) (TABLET) (ERLOTINIB) [Suspect]
     Indication: NON-SMALL CELL LUNG CANCER
     Dosage: 150 MG, QD, ORAL
     Route: 048
     Dates: start: 20081023, end: 20081117
  2. TRAMADOL HYDROHLORIDE [Concomitant]
  3. PANTOPRAZOLE SODIUM [Concomitant]
  4. NOVALGIN (METAMIZOLE SODIUM) [Concomitant]

REACTIONS (2)
  - DIARRHOEA [None]
  - ROTAVIRUS INFECTION [None]
